FAERS Safety Report 19412461 (Version 2)
Quarter: 2021Q2

REPORT INFORMATION
  Report Type: Spontaneous
  Country: US (occurrence: US)
  Receive Date: 20210614
  Receipt Date: 20210614
  Transmission Date: 20210717
  Serious: No
  Sender: FDA-Public Use
  Company Number: US-GALDERMA-US2021011708

PATIENT
  Age: 78 Year
  Sex: Male

DRUGS (1)
  1. DIFFERIN GEL [Suspect]
     Active Substance: ADAPALENE
     Indication: SCAR
     Dosage: 0.1%
     Route: 061
     Dates: start: 20210514, end: 20210521

REACTIONS (1)
  - Product use in unapproved indication [Recovered/Resolved]

NARRATIVE: CASE EVENT DATE: 20210514
